FAERS Safety Report 13327960 (Version 3)
Quarter: 2017Q2

REPORT INFORMATION
  Report Type: Report from Study
  Country: JP (occurrence: JP)
  Receive Date: 20170313
  Receipt Date: 20170516
  Transmission Date: 20170830
  Serious: Yes (Other)
  Sender: FDA-Public Use
  Company Number: JP-HORIZON-BUP-0022-2017

PATIENT
  Age: 5 Year
  Sex: Female

DRUGS (6)
  1. L-CARTIN [Concomitant]
     Active Substance: LEVOCARNITINE HYDROCHLORIDE
     Indication: ORNITHINE TRANSCARBAMOYLASE DEFICIENCY
     Route: 048
  2. ARGI-U [Concomitant]
     Indication: ORNITHINE TRANSCARBAMOYLASE DEFICIENCY
     Route: 048
  3. ONON [Concomitant]
     Active Substance: PRANLUKAST
     Indication: ASTHMA
     Route: 048
  4. SODIUM BENZOATE [Concomitant]
     Active Substance: SODIUM BENZOATE
     Indication: ORNITHINE TRANSCARBAMOYLASE DEFICIENCY
     Route: 048
     Dates: end: 20130221
  5. MONILAC [Concomitant]
     Active Substance: LACTULOSE
     Indication: AMMONIA INCREASED
     Route: 048
  6. BUPHENYL [Suspect]
     Active Substance: SODIUM PHENYLBUTYRATE
     Indication: ORNITHINE TRANSCARBAMOYLASE DEFICIENCY
     Dosage: 250 MG/KG TID, 350 MG/KG 29-MAR-2013, 450 MG/KG 18-APR-2013, 8.1 G TID UNK, 7500 MG/D UNK
     Route: 048
     Dates: start: 20130222, end: 20140424

REACTIONS (2)
  - Nervous system disorder [Recovered/Resolved with Sequelae]
  - Hyperammonaemia [Recovered/Resolved]

NARRATIVE: CASE EVENT DATE: 20140521
